FAERS Safety Report 5442042-3 (Version None)
Quarter: 2007Q3

REPORT INFORMATION
  Report Type: 
  Country: None (occurrence: None)
  Receive Date: 20070904
  Receipt Date: 20070828
  Transmission Date: 20080115
  Serious: Yes (Other)
  Sender: FDA-Public Use
  Company Number: BE-AVENTIS-200714082EU

PATIENT
  Age: 62 Year
  Sex: Female

DRUGS (9)
  1. ENOXAPARIN SODIUM [Suspect]
     Indication: PULMONARY EMBOLISM
     Dates: start: 20070701
  2. CITALOPRAM [Concomitant]
     Indication: DEPRESSION
     Route: 048
     Dates: start: 20040901
  3. METFORMINE [Concomitant]
     Route: 048
     Dates: start: 20050101
  4. CO-BISOPROLOL [Concomitant]
     Indication: HYPERTENSION
     Dates: start: 20060101
  5. DOCTRAZODONE [Concomitant]
     Indication: INSOMNIA
     Route: 048
     Dates: start: 20050101
  6. DOCLORMETA [Concomitant]
     Indication: INSOMNIA
     Route: 048
     Dates: start: 19900101
  7. RANITIDINE [Concomitant]
     Indication: HIATUS HERNIA
     Route: 048
     Dates: start: 20070701
  8. RANITIDINE [Concomitant]
     Route: 048
     Dates: start: 20070701
  9. DUOVENT [Concomitant]
     Indication: CHRONIC OBSTRUCTIVE PULMONARY DISEASE
     Dosage: DOSE: 1/2 AMPOULE
     Dates: start: 20070701

REACTIONS (1)
  - COUGH [None]
